FAERS Safety Report 21626087 (Version 1)
Quarter: 2022Q4

REPORT INFORMATION
  Report Type: Spontaneous
  Country: US (occurrence: None)
  Receive Date: 20221122
  Receipt Date: 20221122
  Transmission Date: 20230112
  Serious: No
  Sender: FDA-Public Use
  Company Number: US-ROCHE-2935566

PATIENT
  Sex: Male
  Weight: 15.890 kg

DRUGS (6)
  1. PULMOZYME [Suspect]
     Active Substance: DORNASE ALFA
     Indication: Cystic fibrosis
     Dates: start: 20200219
  2. PROAIR HFA [Concomitant]
     Active Substance: ALBUTEROL SULFATE
     Dates: start: 20200409
  3. PULMOZYME [Concomitant]
     Active Substance: DORNASE ALFA
     Dates: start: 20200224
  4. ALBUTEROL SULFATE [Concomitant]
     Active Substance: ALBUTEROL SULFATE
     Dates: start: 20200224
  5. BUDESONIDE [Concomitant]
     Active Substance: BUDESONIDE
     Dates: start: 20200409
  6. FLOVENT [Concomitant]
     Active Substance: FLUTICASONE PROPIONATE
     Dates: start: 20200224

REACTIONS (2)
  - Nasopharyngitis [Unknown]
  - Off label use [Unknown]
